FAERS Safety Report 4578022-X (Version None)
Quarter: 2005Q1

REPORT INFORMATION
  Report Type: 
  Country: None (occurrence: None)
  Receive Date: 20050209
  Receipt Date: 20050131
  Transmission Date: 20050727
  Serious: Yes (Life-Threatening, Hospitalization, Other)
  Sender: FDA-Public Use
  Company Number: 2004112572

PATIENT
  Age: 50 Year
  Sex: Female

DRUGS (1)
  1. ZELDOX [Suspect]
     Indication: ABNORMAL BEHAVIOUR
     Dosage: 150 MG (25 MG QID) ORAL
     Route: 048
     Dates: start: 20040825, end: 20041220

REACTIONS (9)
  - DRUG INEFFECTIVE [None]
  - DYSARTHRIA [None]
  - FALL [None]
  - FATIGUE [None]
  - HYPONATRAEMIA [None]
  - MANIA [None]
  - MEMORY IMPAIRMENT [None]
  - POLYDIPSIA [None]
  - WATER INTOXICATION [None]
